FAERS Safety Report 5246432-3 (Version None)
Quarter: 2007Q1

REPORT INFORMATION
  Report Type: 
  Country: None (occurrence: None)
  Receive Date: 20070222
  Receipt Date: 20070222
  Transmission Date: 20070707
  Serious: Yes (Other)
  Sender: FDA-Public Use
  Company Number: None

PATIENT
  Age: 33 Year
  Sex: Male
  Weight: 69.4003 kg

DRUGS (1)
  1. TORADOL [Suspect]
     Indication: MIGRAINE
     Dosage: 60 MG  IM
     Route: 030
     Dates: start: 20050216, end: 20061128

REACTIONS (15)
  - ATROPHY [None]
  - CLOSTRIDIAL INFECTION [None]
  - COLITIS ULCERATIVE [None]
  - DIARRHOEA [None]
  - DUODENAL ULCER [None]
  - GASTRITIS [None]
  - GASTROINTESTINAL DISORDER [None]
  - GASTROINTESTINAL INJURY [None]
  - GASTROINTESTINAL PERFORATION [None]
  - HAEMORRHOIDS [None]
  - IRRITABLE BOWEL SYNDROME [None]
  - OESOPHAGEAL OEDEMA [None]
  - OESOPHAGITIS [None]
  - POST GASTRIC SURGERY SYNDROME [None]
  - WEIGHT DECREASED [None]
